FAERS Safety Report 24746330 (Version 1)
Quarter: 2024Q4

REPORT INFORMATION
  Report Type: Report from Study
  Country: US (occurrence: US)
  Receive Date: 20241218
  Receipt Date: 20241218
  Transmission Date: 20250114
  Serious: Yes (Hospitalization)
  Sender: BAUSCH AND LOMB
  Company Number: US-BAUSCHBL-2024BNL038806

PATIENT
  Age: 79 Year
  Sex: Female

DRUGS (1)
  1. XIIDRA [Suspect]
     Active Substance: LIFITEGRAST
     Indication: Product used for unknown indication
     Dosage: DRUG STRENGTH: 0.05; INSTILL 1 DROP INTO BOTH EYES TWICE A DAY
     Route: 047

REACTIONS (2)
  - Diplopia [Not Recovered/Not Resolved]
  - Vision blurred [Not Recovered/Not Resolved]
